FAERS Safety Report 10009896 (Version 4)
Quarter: 2015Q3

REPORT INFORMATION
  Report Type: Report from Study
  Country: US (occurrence: US)
  Receive Date: 20140313
  Receipt Date: 20150819
  Transmission Date: 20151125
  Serious: Yes (Hospitalization, Disabling)
  Sender: FDA-Public Use
  Company Number: PHHO2014US001986

PATIENT
  Age: 70 Year
  Sex: Female
  Weight: 67.2 kg

DRUGS (13)
  1. ETOPOSIDE. [Suspect]
     Active Substance: ETOPOSIDE
     Dosage: 100 MG/M2/DAY ON DAY 1, 2 AND 3
     Route: 065
     Dates: start: 20140218, end: 20140220
  2. CARBOPLATIN. [Suspect]
     Active Substance: CARBOPLATIN
     Dosage: 5 MG/ML/MIN
     Route: 042
     Dates: start: 20140218, end: 20140218
  3. ETOPOSIDE. [Suspect]
     Active Substance: ETOPOSIDE
     Dosage: 100MG/M2/DAY
     Route: 065
     Dates: start: 20140317, end: 20140319
  4. IFOSFAMIDE. [Suspect]
     Active Substance: IFOSFAMIDE
     Indication: HODGKIN^S DISEASE LYMPHOCYTE DEPLETION TYPE REFRACTORY
     Dosage: 5G/M2 24 HOURS ON DAY 1
     Route: 042
     Dates: start: 20140130, end: 20140130
  5. ETOPOSIDE. [Suspect]
     Active Substance: ETOPOSIDE
     Indication: HODGKIN^S DISEASE LYMPHOCYTE DEPLETION TYPE REFRACTORY
     Dosage: 100 MG/M2/DAY(DAY 1, 2 AND 3)
     Route: 065
     Dates: start: 20140130, end: 20140201
  6. FARYDAK [Suspect]
     Active Substance: PANOBINOSTAT
     Indication: HODGKIN^S DISEASE LYMPHOCYTE DEPLETION TYPE REFRACTORY
     Dosage: 30 MG, TIW
     Route: 048
     Dates: start: 20140123
  7. CARBOPLATIN. [Suspect]
     Active Substance: CARBOPLATIN
     Dosage: 5 MG/ML/MIN
     Route: 042
     Dates: start: 20140317, end: 20140317
  8. IFOSFAMIDE. [Suspect]
     Active Substance: IFOSFAMIDE
     Dosage: 5 G/M2 24 HOURS ON DAY 1
     Route: 042
     Dates: start: 20140218, end: 20140218
  9. MESNA. [Concomitant]
     Active Substance: MESNA
     Dosage: 5G/M2 24 HOURS
     Route: 065
     Dates: start: 20140317, end: 20140317
  10. FARYDAK [Suspect]
     Active Substance: PANOBINOSTAT
     Dosage: 20 MG, TIW
     Route: 048
  11. MESNA. [Concomitant]
     Active Substance: MESNA
     Indication: HODGKIN^S DISEASE LYMPHOCYTE DEPLETION TYPE REFRACTORY
     Dosage: 5G/M2 ON DAY 1 AND 2G/M2 ON DAY2
     Route: 065
     Dates: start: 20140130
  12. MESNA. [Concomitant]
     Active Substance: MESNA
     Dosage: 5G/M2 ON DAY 1 AND 2G/M2 ON DAY2
     Route: 065
     Dates: start: 20140218, end: 20140219
  13. CARBOPLATIN. [Suspect]
     Active Substance: CARBOPLATIN
     Indication: HODGKIN^S DISEASE LYMPHOCYTE DEPLETION TYPE REFRACTORY
     Dosage: 5 MG/ML/MIN ON DAY 1
     Route: 042
     Dates: start: 20140130, end: 20140130

REACTIONS (5)
  - Cellulitis [Not Recovered/Not Resolved]
  - Thrombocytopenia [Recovered/Resolved]
  - Hypokalaemia [Recovered/Resolved]
  - Syncope [Recovered/Resolved]
  - Febrile neutropenia [Recovered/Resolved]

NARRATIVE: CASE EVENT DATE: 20140202
